FAERS Safety Report 25652212 (Version 1)
Quarter: 2025Q3

REPORT INFORMATION
  Report Type: Spontaneous
  Country: US (occurrence: US)
  Receive Date: 20250807
  Receipt Date: 20250807
  Transmission Date: 20251021
  Serious: No
  Sender: GLAXOSMITHKLINE
  Company Number: US-GSK-US2025AMR092349

PATIENT

DRUGS (4)
  1. BENLYSTA [Suspect]
     Active Substance: BELIMUMAB
     Indication: Drug therapy
  2. BENLYSTA [Suspect]
     Active Substance: BELIMUMAB
     Indication: Neuritis
  3. BENLYSTA [Suspect]
     Active Substance: BELIMUMAB
     Indication: Neuralgia
  4. BENLYSTA [Suspect]
     Active Substance: BELIMUMAB
     Indication: Circadian rhythm sleep disorder

REACTIONS (1)
  - Off label use [Unknown]
